FAERS Safety Report 5676518-0 (Version None)
Quarter: 2008Q1

REPORT INFORMATION
  Report Type: 
  Country: None (occurrence: None)
  Receive Date: 20080324
  Receipt Date: 20080310
  Transmission Date: 20080703
  Serious: Yes (Disabling)
  Sender: FDA-Public Use
  Company Number: GB-RANBAXY-2008RR-13677

PATIENT

DRUGS (7)
  1. SIMVASTATIN [Suspect]
     Indication: BLOOD CHOLESTEROL INCREASED
     Dosage: 20 MG, UNK
     Route: 048
  2. AMLODIPINE [Concomitant]
     Dosage: 10 MG, UNK
  3. ASPIRIN [Concomitant]
     Dosage: 75 MG, QD
     Route: 048
  4. ATENOLOL TABLETS BP 50MG [Concomitant]
     Dosage: 25 MG, QD
     Route: 048
  5. CO-AMILOFRUSE TABLETS 5/40 [Concomitant]
  6. GLYCERYL TRINITRATE [Concomitant]
     Dosage: UNK
  7. IRBESARTAN [Concomitant]
     Dosage: 150 MG, QD
     Route: 048

REACTIONS (3)
  - AFFECTIVE DISORDER [None]
  - CONFUSIONAL STATE [None]
  - MEMORY IMPAIRMENT [None]
